FAERS Safety Report 17895245 (Version 1)
Quarter: 2020Q2

REPORT INFORMATION
  Report Type: Spontaneous
  Country: CN (occurrence: CN)
  Receive Date: 20200615
  Receipt Date: 20200615
  Transmission Date: 20200714
  Serious: Yes (Hospitalization)
  Sender: FDA-Public Use
  Company Number: NVSC2020CN164747

PATIENT
  Age: 6 Year
  Sex: Male
  Weight: 22 kg

DRUGS (3)
  1. OXCARBAZEPINE. [Suspect]
     Active Substance: OXCARBAZEPINE
     Indication: EPILEPSY
     Dosage: 0.15 G, QD (IN THE MORNING)
     Route: 048
     Dates: start: 20180925
  2. OXCARBAZEPINE. [Suspect]
     Active Substance: OXCARBAZEPINE
     Dosage: 0.007 G, QD (AT NIGHT)
     Route: 048
  3. OXCARBAZEPINE. [Suspect]
     Active Substance: OXCARBAZEPINE
     Dosage: 0.15 G, BID
     Route: 048

REACTIONS (4)
  - Seizure [Recovered/Resolved]
  - Rash maculo-papular [Recovering/Resolving]
  - Drug eruption [Unknown]
  - Pruritus [Unknown]

NARRATIVE: CASE EVENT DATE: 20181105
